FAERS Safety Report 8050691-1 (Version None)
Quarter: 2012Q1

REPORT INFORMATION
  Report Type: 
  Country: None (occurrence: None)
  Receive Date: 20120117
  Receipt Date: 20120117
  Transmission Date: 20120608
  Serious: Yes (Other)
  Sender: FDA-Public Use
  Company Number: None

PATIENT

DRUGS (2)
  1. CARVEDILOL [Concomitant]
  2. CARVEDILOL [Suspect]

REACTIONS (5)
  - DRUG DOSE OMISSION [None]
  - INCORRECT DOSE ADMINISTERED [None]
  - PRODUCT MEASURED POTENCY ISSUE [None]
  - PRODUCT FRIABLE [None]
  - WRONG TECHNIQUE IN DRUG USAGE PROCESS [None]
